FAERS Safety Report 4339973-4 (Version None)
Quarter: 2004Q2

REPORT INFORMATION
  Report Type: 
  Country: None (occurrence: None)
  Receive Date: 20040412
  Receipt Date: 20040330
  Transmission Date: 20050107
  Serious: Yes (Hospitalization)
  Sender: FDA-Public Use
  Company Number: 2003168892DE

PATIENT
  Age: 47 Year
  Sex: Female
  Weight: 80 kg

DRUGS (4)
  1. EPIRUBICIN [Suspect]
     Indication: BREAST CANCER METASTATIC
     Dosage: 171 MG, CYCLIC IV
     Route: 042
     Dates: start: 20030228, end: 20030613
  2. CYCLOPHOSPHAMIDE [Suspect]
     Indication: BREAST CANCER METASTATIC
     Dosage: 1140 MG, CYCLIC, IV
     Route: 042
     Dates: start: 20030228, end: 20030613
  3. DEXAMETHASONE [Concomitant]
  4. UROMITEXAN [Concomitant]

REACTIONS (1)
  - ATRIAL FIBRILLATION [None]
